FAERS Safety Report 6015722-9 (Version None)
Quarter: 2008Q4

REPORT INFORMATION
  Report Type: 
  Country: None (occurrence: None)
  Receive Date: 20081219
  Receipt Date: 20081219
  Transmission Date: 20090506
  Serious: Yes (Other)
  Sender: FDA-Public Use
  Company Number: None

PATIENT
  Sex: Male
  Weight: 90.7194 kg

DRUGS (2)
  1. RISPERDAL [Suspect]
     Indication: SCHIZOPHRENIA, PARANOID TYPE
     Dosage: 6 MG'S DAILY PO A FEW MONTHS
     Route: 048
  2. RISPERDAL [Suspect]
     Indication: SCHIZOPHRENIA, PARANOID TYPE
     Dosage: 3 MG'S DAILY PO 10 TO 15 YEARS
     Route: 048

REACTIONS (30)
  - ABDOMINAL DISCOMFORT [None]
  - ABDOMINAL PAIN UPPER [None]
  - AGGRESSION [None]
  - AGITATION [None]
  - ASTHENIA [None]
  - BALANCE DISORDER [None]
  - BREAST ENLARGEMENT [None]
  - CONFUSIONAL STATE [None]
  - DISTURBANCE IN ATTENTION [None]
  - DROOLING [None]
  - DRY MOUTH [None]
  - DYSPHAGIA [None]
  - DYSSTASIA [None]
  - FATIGUE [None]
  - GAIT DISTURBANCE [None]
  - HYPERHIDROSIS [None]
  - MEMORY IMPAIRMENT [None]
  - NASAL CONGESTION [None]
  - NAUSEA [None]
  - OBESITY [None]
  - PRESYNCOPE [None]
  - RHINORRHOEA [None]
  - SEXUAL DYSFUNCTION [None]
  - SOMNOLENCE [None]
  - SPEECH DISORDER [None]
  - SUICIDAL IDEATION [None]
  - SWOLLEN TONGUE [None]
  - THINKING ABNORMAL [None]
  - VISUAL IMPAIRMENT [None]
  - WEIGHT INCREASED [None]
